FAERS Safety Report 15417462 (Version 1)
Quarter: 2018Q3

REPORT INFORMATION
  Report Type: Spontaneous
  Country: US (occurrence: US)
  Receive Date: 20180917
  Receipt Date: 20180917
  Transmission Date: 20181010
  Serious: Yes (Hospitalization)
  Sender: FDA-Public Use
  Company Number: None

PATIENT
  Age: 47 Year
  Sex: Female

DRUGS (1)
  1. ALLOPURINOL. [Suspect]
     Active Substance: ALLOPURINOL
     Route: 048
     Dates: start: 20180616, end: 20180617

REACTIONS (1)
  - Toxicity to various agents [None]

NARRATIVE: CASE EVENT DATE: 20180616
